FAERS Safety Report 10373850 (Version 1)
Quarter: 2014Q1

REPORT INFORMATION
  Report Type: Spontaneous
  Country: US (occurrence: None)
  Receive Date: 20140306
  Receipt Date: 20140306
  Transmission Date: 20141002
  Serious: Yes (Other)
  Sender: FDA-Public Use
  Company Number: 163-21880-13105089

PATIENT
  Age: 80 Year
  Sex: Female
  Weight: 86.18 kg

DRUGS (5)
  1. REVLIMID [Suspect]
     Indication: PLASMA CELL MYELOMA
     Dosage: 10 MG, 28 IN 28 D, PO
     Route: 048
     Dates: start: 201308, end: 20131002
  2. VELCADE (BORTEZOMIB) [Concomitant]
  3. GABAPENTIN (GABAPENTIN) [Concomitant]
  4. MEEETHYLPREDNISOLONE [Concomitant]
  5. ARANESP (DARBEPOETIN ALFA) [Concomitant]

REACTIONS (5)
  - Renal impairment [None]
  - Thrombocytopenia [None]
  - Nausea [None]
  - Vomiting [None]
  - White blood cell count decreased [None]
